FAERS Safety Report 21822678 (Version 1)
Quarter: 2023Q1

REPORT INFORMATION
  Report Type: Spontaneous
  Country: US (occurrence: None)
  Receive Date: 20230104
  Receipt Date: 20230104
  Transmission Date: 20230418
  Serious: Yes (Other)
  Sender: FDA-Public Use
  Company Number: None

PATIENT
  Age: 48 Year
  Sex: Female
  Weight: 82.35 kg

DRUGS (16)
  1. SULFUR 8 ORIGINAL ANTI-DANDRUFF HAIR AND SCALP CONDITIONER [Suspect]
     Active Substance: SULFUR
     Indication: Dry skin
     Dosage: OTHER STRENGTH : 4 OZ  113G;?OTHER FREQUENCY : AS NEEDE;?OTHER ROUTE : ON THE SCALP;?
     Route: 050
     Dates: start: 20221222, end: 20221224
  2. DIETARY SUPPLEMENT [Suspect]
     Active Substance: DIETARY SUPPLEMENT
     Indication: Hair growth abnormal
     Dosage: OTHER QUANTITY : 60 TABLET(S);?FREQUENCY : TWICE A DAY;?
     Route: 060
     Dates: end: 20230103
  3. DIETARY SUPPLEMENT [Suspect]
     Active Substance: DIETARY SUPPLEMENT
     Indication: Hair disorder
  4. LISINOPRIL [Concomitant]
     Active Substance: LISINOPRIL
  5. VENTOLIN [Concomitant]
     Active Substance: ALBUTEROL SULFATE
  6. sybacourt [Concomitant]
  7. ibuprophen 80mg [Concomitant]
  8. DEPAKOTE [Concomitant]
     Active Substance: DIVALPROEX SODIUM
  9. duonab [Concomitant]
  10. SINGULAIR [Concomitant]
     Active Substance: MONTELUKAST SODIUM
  11. adroxizene [Concomitant]
  12. flonaze prednizone [Concomitant]
  13. depoprvera shots [Concomitant]
  14. BENADRYL [Concomitant]
     Active Substance: DIPHENHYDRAMINE HYDROCHLORIDE
  15. BENGAY ARTHRITIS PAIN RELIEVING [Concomitant]
     Active Substance: MENTHOL\METHYL SALICYLATE
  16. icyhot [Concomitant]

REACTIONS (3)
  - Application site pruritus [None]
  - Application site pain [None]
  - Trichorrhexis [None]

NARRATIVE: CASE EVENT DATE: 20221224
